FAERS Safety Report 4384549-6 (Version None)
Quarter: 2004Q2

REPORT INFORMATION
  Report Type: 
  Country: None (occurrence: None)
  Receive Date: 20040607
  Receipt Date: 20030427
  Transmission Date: 20050107
  Serious: Yes (Other)
  Sender: FDA-Public Use
  Company Number: 337181

PATIENT

DRUGS (2)
  1. ACCUTANE [Suspect]
     Indication: OILY SKIN
     Dosage: 1 DOSE FORM 5 PER MONTH ORAL
     Route: 048
  2. ACCUTANE [Suspect]
     Indication: SEBORRHOEA
     Dosage: 1 DOSE FORM 5 PER MONTH ORAL
     Route: 048

REACTIONS (3)
  - ABORTION INDUCED [None]
  - DRUG EXPOSURE DURING PREGNANCY [None]
  - NO ADVERSE DRUG EFFECT [None]
